FAERS Safety Report 25552686 (Version 3)
Quarter: 2025Q4

REPORT INFORMATION
  Report Type: Report from Study
  Country: US (occurrence: None)
  Receive Date: 20250715
  Receipt Date: 20251020
  Transmission Date: 20260117
  Serious: Yes (Other)
  Sender: UCB
  Company Number: US-UCBSA-2025042869

PATIENT
  Age: 59 Year

DRUGS (1)
  1. BIMZELX [Suspect]
     Active Substance: BIMEKIZUMAB-BKZX
     Indication: Psoriasis
     Dosage: 320 MILLIGRAM, EV 4 WEEKS

REACTIONS (3)
  - Depression [Recovering/Resolving]
  - Rheumatoid arthritis [Not Recovered/Not Resolved]
  - Injection site pain [Recovered/Resolved]
